FAERS Safety Report 7192146 (Version 26)
Quarter: 2012Q4

REPORT INFORMATION
  Report Type: 
  Country: CA (occurrence: CA)
  Receive Date: 20091129
  Receipt Date: 20121111
  Transmission Date: 20130627
  Serious: Yes (Hospitalization, Other)
  Sender: FDA-Public Use
  Company Number: PHHY2009CA15583

PATIENT
  Sex: Female

DRUGS (20)
  1. SANDOSTATIN LAR [Suspect]
     Indication: NEUROENDOCRINE TUMOUR
     Dosage: 20 mg, every 4 weeks
     Route: 030
     Dates: start: 20070824, end: 20110405
  2. SANDOSTATIN LAR [Suspect]
     Dosage: 20 mg, every 3 weeks
     Route: 030
     Dates: start: 20100602
  3. SANDOSTATIN LAR [Suspect]
     Dosage: 20 mg, QMO
     Route: 030
     Dates: end: 20110405
  4. SANDOSTATIN LAR [Suspect]
     Dates: start: 20080307
  5. SANDOSTATIN [Suspect]
     Indication: NEUROENDOCRINE TUMOUR
     Route: 058
  6. SANDOSTATIN [Suspect]
     Dosage: 20 mg, BID
     Route: 058
  7. SWINE FLU VACCINE, MONOVALENT [Concomitant]
  8. CYPROHEPTADINE [Concomitant]
  9. FERROUS SULFATE [Concomitant]
  10. NOVO-VENLAFAXINE [Concomitant]
  11. NOVO-PANTOPRAZOLE [Concomitant]
  12. METFORMIN [Concomitant]
  13. ASAPHEN [Concomitant]
  14. APO-OXAZEPAM [Concomitant]
  15. CALCIUM WITH VITAMIN D [Concomitant]
  16. NOVO-LOPERAMIDE [Concomitant]
  17. NOVO-DOCUSATE [Concomitant]
  18. SENNTAB [Concomitant]
  19. SYNTHROID [Concomitant]
  20. FLU VAX [Concomitant]

REACTIONS (45)
  - Cerebrovascular accident [Unknown]
  - Blood sodium decreased [Unknown]
  - Epistaxis [Unknown]
  - Anaemia [Unknown]
  - Loss of consciousness [Unknown]
  - Speech disorder [Unknown]
  - Memory impairment [Unknown]
  - Transient ischaemic attack [Unknown]
  - Hypertension [Unknown]
  - Hypotension [Unknown]
  - General physical health deterioration [Unknown]
  - Fatigue [Unknown]
  - Asthenia [Unknown]
  - Visual field defect [Recovered/Resolved]
  - Pedal pulse abnormal [Unknown]
  - Abdominal pain [Unknown]
  - Blood pressure diastolic increased [Unknown]
  - Blood pressure systolic increased [Unknown]
  - Influenza [Unknown]
  - Stress [Unknown]
  - Malaise [Unknown]
  - Feeling abnormal [Unknown]
  - Muscular weakness [Unknown]
  - Gait disturbance [Unknown]
  - Pain in extremity [Unknown]
  - Hypophagia [Unknown]
  - Injection site pain [Unknown]
  - Nausea [Unknown]
  - Diarrhoea [Unknown]
  - Vomiting [Unknown]
  - Myalgia [Unknown]
  - Arthralgia [Unknown]
  - Psychiatric symptom [Unknown]
  - Back pain [Unknown]
  - Abdominal pain upper [Unknown]
  - Hypersomnia [Recovering/Resolving]
  - Amnesia [Unknown]
  - Pruritus [Unknown]
  - Irritability [Unknown]
  - Heart rate increased [Unknown]
  - Hepatic pain [Unknown]
  - Insomnia [Unknown]
  - Chest pain [Unknown]
  - Hypoaesthesia [Unknown]
  - Neuralgia [Unknown]
